FAERS Safety Report 22609516 (Version 3)
Quarter: 2023Q4

REPORT INFORMATION
  Report Type: Spontaneous
  Country: US (occurrence: US)
  Receive Date: 20230616
  Receipt Date: 20231220
  Transmission Date: 20240110
  Serious: Yes (Other)
  Sender: FDA-Public Use
  Company Number: US-PFIZER INC-202300220788

PATIENT
  Age: 68 Year
  Sex: Female

DRUGS (2)
  1. TRANEXAMIC ACID [Suspect]
     Active Substance: TRANEXAMIC ACID
     Indication: Neck plastic surgery
     Dosage: MIXED INTO THE TUMESCENT FLUID AND INJECTED INTO THE FIELD
  2. TRANEXAMIC ACID [Suspect]
     Active Substance: TRANEXAMIC ACID
     Indication: Face lift

REACTIONS (3)
  - Off label use [Unknown]
  - Impaired healing [Unknown]
  - Ischaemia [Unknown]
